FAERS Safety Report 8475531-8 (Version None)
Quarter: 2012Q2

REPORT INFORMATION
  Report Type: 
  Country: None (occurrence: None)
  Receive Date: 20120628
  Receipt Date: 20120620
  Transmission Date: 20120825
  Serious: Yes (Other)
  Sender: FDA-Public Use
  Company Number: US-JNJFOC-20120514146

PATIENT
  Sex: Male

DRUGS (11)
  1. NUCYNTA ER [Suspect]
     Indication: PAIN
     Dosage: 50 MG THRICE IN A DAY (TID)
     Route: 048
     Dates: start: 20120329, end: 20120411
  2. AZELASTINE HCL [Concomitant]
     Indication: PRODUCT USED FOR UNKNOWN INDICATION
     Route: 065
  3. LISINOPRIL [Concomitant]
     Indication: PRODUCT USED FOR UNKNOWN INDICATION
     Route: 065
  4. ASPIRIN [Concomitant]
     Indication: CARDIAC DISORDER
     Route: 065
  5. UNKNOWN MEDICATION [Concomitant]
     Indication: PRODUCT USED FOR UNKNOWN INDICATION
     Dosage: 10 (UNIT UNSPECIFIED)
     Route: 065
     Dates: start: 20100101
  6. CYMBALTA [Interacting]
     Indication: ANXIETY
     Dosage: 90 (UNIT UNSPECIFIED) QD (EVERY DAY)
     Route: 065
  7. SSRI (SELECTIVE SEROTONIN REUPTAKE INHIBITOR) [Interacting]
     Indication: PRODUCT USED FOR UNKNOWN INDICATION
     Route: 065
  8. MORPHINE SULFATE [Concomitant]
     Indication: BACK PAIN
     Route: 065
  9. CYCLOBENZAPRINE [Interacting]
     Indication: MUSCLE SPASMS
     Route: 065
  10. CARVEDILOL [Concomitant]
     Indication: HYPERTENSION
     Route: 065
  11. PLAVIX [Concomitant]
     Indication: CARDIAC DISORDER
     Route: 065

REACTIONS (6)
  - SEROTONIN SYNDROME [None]
  - CONFUSIONAL STATE [None]
  - COGNITIVE DISORDER [None]
  - DRUG INTERACTION [None]
  - AGITATION [None]
  - MANIA [None]
